FAERS Safety Report 14085361 (Version 1)
Quarter: 2017Q4

REPORT INFORMATION
  Report Type: Spontaneous
  Country: FR (occurrence: FR)
  Receive Date: 20171013
  Receipt Date: 20171013
  Transmission Date: 20180321
  Serious: Yes (Hospitalization)
  Sender: FDA-Public Use
  Company Number: FR-B.I. PHARMACEUTICALS,INC./RIDGEFIELD-2017-BI-054381

PATIENT
  Age: 23 Year
  Sex: Female

DRUGS (2)
  1. CATAPRESSAN [Suspect]
     Active Substance: CLONIDINE
     Indication: SUICIDE ATTEMPT
     Route: 048
     Dates: start: 20170813, end: 20170813
  2. LOXEN LP [Suspect]
     Active Substance: NICARDIPINE HYDROCHLORIDE
     Indication: SUICIDE ATTEMPT
     Route: 048
     Dates: start: 20170813, end: 20170813

REACTIONS (2)
  - Intentional overdose [Recovered/Resolved]
  - Hypotension [Unknown]

NARRATIVE: CASE EVENT DATE: 20170813
